FAERS Safety Report 9638123 (Version 3)
Quarter: 2013Q4

REPORT INFORMATION
  Report Type: Spontaneous
  Country: US (occurrence: US)
  Receive Date: 20131022
  Receipt Date: 20131105
  Transmission Date: 20140711
  Serious: No
  Sender: FDA-Public Use
  Company Number: US-PFIZER INC-2013300424

PATIENT
  Age: 57 Year
  Sex: Female
  Weight: 127 kg

DRUGS (3)
  1. LYRICA [Suspect]
     Indication: DIABETIC NEUROPATHY
     Dosage: 75 MG, DAILY
     Dates: start: 2012
  2. LYRICA [Suspect]
     Indication: NERVOUS SYSTEM DISORDER
  3. JANUMET XR [Concomitant]
     Indication: DIABETES MELLITUS
     Dosage: SITAGLIPTIN 50MG/ METFORMIN HYDROCHLORIDE 500 MG, 1X/DAY

REACTIONS (2)
  - Somnolence [Unknown]
  - Headache [Unknown]
